FAERS Safety Report 13653572 (Version 1)
Quarter: 2017Q2

REPORT INFORMATION
  Report Type: Spontaneous
  Country: US (occurrence: US)
  Receive Date: 20170614
  Receipt Date: 20170614
  Transmission Date: 20170830
  Serious: No
  Sender: FDA-Public Use
  Company Number: US-ROCHE-1306246

PATIENT
  Age: 55 Year
  Sex: Male

DRUGS (9)
  1. ADVAIR HFA [Concomitant]
     Active Substance: FLUTICASONE PROPIONATE\SALMETEROL XINAFOATE
  2. XELODA [Suspect]
     Active Substance: CAPECITABINE
     Dosage: DOSAGE CHANGE
     Route: 048
     Dates: start: 20131029
  3. LISINOPRIL. [Concomitant]
     Active Substance: LISINOPRIL
  4. XELODA [Suspect]
     Active Substance: CAPECITABINE
     Dosage: ON MONDAY THROUGH FRIDAY FOR 6 WEEKS
     Route: 048
     Dates: start: 20130917
  5. LORAZEPAM. [Concomitant]
     Active Substance: LORAZEPAM
  6. SIMVASTATIN. [Concomitant]
     Active Substance: SIMVASTATIN
  7. METFORMIN [Concomitant]
     Active Substance: METFORMIN HYDROCHLORIDE
     Route: 065
  8. SERTRALINE [Concomitant]
     Active Substance: SERTRALINE HYDROCHLORIDE
  9. XELODA [Suspect]
     Active Substance: CAPECITABINE
     Indication: RECTAL CANCER
     Dosage: 4 IN AM, 3 IN THE PM ON MONDAY THROUGH FRIDAY FOR 6 WKS
     Route: 048
     Dates: start: 20130917

REACTIONS (1)
  - Blood urine present [Recovered/Resolved]

NARRATIVE: CASE EVENT DATE: 20131104
